FAERS Safety Report 8489691-6 (Version None)
Quarter: 2012Q3

REPORT INFORMATION
  Report Type: 
  Country: None (occurrence: None)
  Receive Date: 20120705
  Receipt Date: 20120627
  Transmission Date: 20120928
  Serious: Yes (Other)
  Sender: FDA-Public Use
  Company Number: CA-GLAXOSMITHKLINE-A0980421A

PATIENT
  Sex: Female
  Weight: 75.5 kg

DRUGS (5)
  1. SEROQUEL [Concomitant]
     Indication: INSOMNIA
     Dates: start: 20110707
  2. PAXIL [Suspect]
     Indication: MAJOR DEPRESSION
     Dosage: 30MG TWICE PER DAY
     Route: 065
     Dates: start: 20000228
  3. XANAX [Concomitant]
     Dosage: .5MG SIX TIMES PER DAY
     Route: 065
  4. WELLBUTRIN [Concomitant]
     Indication: DEPRESSION
     Dosage: 300Z PER DAY
     Route: 065
     Dates: start: 20100525
  5. SLEEPING PILLS [Concomitant]
     Dosage: 2TAB PER DAY
     Route: 065

REACTIONS (5)
  - LOSS OF LIBIDO [None]
  - LOSS OF CONSCIOUSNESS [None]
  - DIZZINESS [None]
  - VOMITING [None]
  - TREMOR [None]
